FAERS Safety Report 4277428-6 (Version None)
Quarter: 2004Q1

REPORT INFORMATION
  Report Type: 
  Country: None (occurrence: None)
  Receive Date: 20040122
  Receipt Date: 20031204
  Transmission Date: 20041129
  Serious: Yes (Hospitalization)
  Sender: FDA-Public Use
  Company Number: GB-BRISTOL-MYERS SQUIBB COMPANY-12449294

PATIENT
  Age: 86 Year
  Sex: Male
  Weight: 80 kg

DRUGS (3)
  1. CAPTOPRIL [Suspect]
     Indication: HYPERTENSION
     Route: 048
  2. BUPIVACAINE [Interacting]
     Indication: SPINAL ANAESTHESIA
     Dosage: 3.0-3.5 ML; 0.5% STRENGTH
  3. BENDROFLUAZIDE [Concomitant]
     Indication: HYPERTENSION
     Route: 048

REACTIONS (5)
  - BRADYCARDIA [None]
  - DEPRESSED LEVEL OF CONSCIOUSNESS [None]
  - DRUG INTERACTION [None]
  - HYPOTENSION [None]
  - VENTRICULAR EXTRASYSTOLES [None]
